FAERS Safety Report 8576049-4 (Version None)
Quarter: 2012Q3

REPORT INFORMATION
  Report Type: 
  Country: None (occurrence: None)
  Receive Date: 20120724
  Receipt Date: 20120711
  Transmission Date: 20120928
  Serious: Yes (Hospitalization, Other)
  Sender: FDA-Public Use
  Company Number: 2012P1050051

PATIENT
  Age: 72 Year
  Sex: Male

DRUGS (7)
  1. CITALOPRAM HYDROBROMIDE [Concomitant]
  2. DIGOXIN [Concomitant]
  3. SIMVASTATIN [Concomitant]
  4. AMITRIPTYLINE HCL [Concomitant]
  5. INDAPAMIDE [Concomitant]
  6. LEVETIRACETAM [Suspect]
     Indication: DEPRESSION
     Dosage: 250 MG;BID
  7. CODEINE [Concomitant]

REACTIONS (9)
  - GENERAL PHYSICAL HEALTH DETERIORATION [None]
  - PARANOIA [None]
  - SOMNOLENCE [None]
  - DECREASED EYE CONTACT [None]
  - MOBILITY DECREASED [None]
  - DEPRESSION [None]
  - INCONTINENCE [None]
  - HEMIPARESIS [None]
  - MINI MENTAL STATUS EXAMINATION ABNORMAL [None]
